FAERS Safety Report 25025507 (Version 2)
Quarter: 2025Q2

REPORT INFORMATION
  Report Type: Spontaneous
  Country: US (occurrence: US)
  Receive Date: 20250228
  Receipt Date: 20250402
  Transmission Date: 20250717
  Serious: Yes (Other)
  Sender: MERCK SHARP AND DOHME
  Company Number: US-009507513-2256417

PATIENT
  Sex: Female
  Weight: 29 kg

DRUGS (2)
  1. PREVYMIS [Suspect]
     Active Substance: LETERMOVIR
     Indication: Stem cell transplant
     Route: 048
     Dates: start: 20241104
  2. PREVYMIS [Suspect]
     Active Substance: LETERMOVIR
     Indication: Stem cell transplant
     Route: 042
     Dates: start: 20241023, end: 20241104

REACTIONS (2)
  - Deafness [Unknown]
  - Ototoxicity [Unknown]

NARRATIVE: CASE EVENT DATE: 20240101
